FAERS Safety Report 13543975 (Version 6)
Quarter: 2017Q3

REPORT INFORMATION
  Report Type: Report from Study
  Country: None (occurrence: TR)
  Receive Date: 20170515
  Receipt Date: 20170712
  Transmission Date: 20171127
  Serious: Yes (Hospitalization, Other)
  Sender: FDA-Public Use
  Company Number: TR-ABBVIE-17K-161-1974014-00

PATIENT
  Age: 77 Year
  Sex: Female
  Weight: 54 kg

DRUGS (10)
  1. DUODOPA [Suspect]
     Active Substance: CARBIDOPA\LEVODOPA
     Indication: PARKINSON^S DISEASE
     Dosage: MORNING DOSE: 8.00 ML??CONTINUOUS DOSE: 3.70 ML??EXTRA DOSE: 1.00 ML
     Route: 050
     Dates: start: 20140513
  2. SPASMEX [Concomitant]
     Active Substance: TROSPIUM CHLORIDE
     Indication: INCONTINENCE
     Dosage: 2X 2+1/2
     Route: 048
  3. MOTILIUM [Concomitant]
     Active Substance: DOMPERIDONE
     Indication: ANTIEMETIC SUPPORTIVE CARE
     Route: 048
     Dates: start: 20140513
  4. MODIWAKE [Concomitant]
     Indication: PSYCHOTIC DISORDER
     Route: 048
  5. MALTOFER [Concomitant]
     Active Substance: IRON POLYMALTOSE
     Indication: MINERAL SUPPLEMENTATION
     Route: 048
     Dates: start: 20140513
  6. LEPONEX [Concomitant]
     Active Substance: CLOZAPINE
     Indication: PSYCHOTIC DISORDER
     Dosage: 1X1/3
     Route: 048
  7. D VITA [Concomitant]
     Indication: VITAMIN SUPPLEMENTATION
  8. ASTONIN [Concomitant]
     Indication: ORTHOSTATIC HYPOTENSION
     Route: 048
     Dates: start: 2012
  9. PK-MERZ [Concomitant]
     Active Substance: AMANTADINE
     Indication: PARKINSON^S DISEASE
     Dosage: 3X 1/2
     Route: 048
     Dates: start: 2000
  10. EXELON PATCH [Concomitant]
     Active Substance: RIVASTIGMINE
     Indication: PARKINSON^S DISEASE
     Route: 062
     Dates: start: 2015

REACTIONS (2)
  - Pneumonia escherichia [Recovered/Resolved]
  - Respiratory moniliasis [Recovered/Resolved]

NARRATIVE: CASE EVENT DATE: 20170512
